FAERS Safety Report 11097494 (Version 1)
Quarter: 2015Q2

REPORT INFORMATION
  Report Type: Spontaneous
  Country: US (occurrence: None)
  Receive Date: 20150506
  Receipt Date: 20150506
  Transmission Date: 20150821
  Serious: No
  Sender: FDA-Public Use
  Company Number: None

PATIENT
  Age: 78 Year
  Sex: Male

DRUGS (1)
  1. ERIVEDGE [Suspect]
     Active Substance: VISMODEGIB
     Indication: BASAL CELL CARCINOMA
     Route: 048
     Dates: start: 201504

REACTIONS (4)
  - Fatigue [None]
  - Abdominal discomfort [None]
  - Gastric disorder [None]
  - Productive cough [None]

NARRATIVE: CASE EVENT DATE: 20150504
